FAERS Safety Report 14710384 (Version 1)
Quarter: 2018Q2

REPORT INFORMATION
  Report Type: Spontaneous
  Country: US (occurrence: US)
  Receive Date: 20180403
  Receipt Date: 20180403
  Transmission Date: 20180711
  Serious: No
  Sender: FDA-Public Use
  Company Number: US-ROCHE-2001448

PATIENT
  Sex: Female

DRUGS (1)
  1. ERIVEDGE [Suspect]
     Active Substance: VISMODEGIB
     Indication: BASAL CELL CARCINOMA
     Route: 065
     Dates: start: 20170928

REACTIONS (5)
  - Asthenia [Unknown]
  - Arthralgia [Unknown]
  - Vomiting [Unknown]
  - Myalgia [Unknown]
  - Nausea [Unknown]
